FAERS Safety Report 14164991 (Version 1)
Quarter: 2017Q4

REPORT INFORMATION
  Report Type: Spontaneous
  Country: US (occurrence: None)
  Receive Date: 20171107
  Receipt Date: 20171107
  Transmission Date: 20180321
  Serious: Yes (Hospitalization, Other)
  Sender: FDA-Public Use
  Company Number: None

PATIENT
  Age: 30 Year
  Sex: Female
  Weight: 55.79 kg

DRUGS (7)
  1. METHYLDOPA. [Concomitant]
     Active Substance: METHYLDOPA
  2. LATUDA [Suspect]
     Active Substance: LURASIDONE HYDROCHLORIDE
  3. ABILIFY [Concomitant]
     Active Substance: ARIPIPRAZOLE
  4. XANAX [Concomitant]
     Active Substance: ALPRAZOLAM
  5. FLAGYL [Concomitant]
     Active Substance: METRONIDAZOLE\METRONIDAZOLE HYDROCHLORIDE
  6. ZOLOFT [Concomitant]
     Active Substance: SERTRALINE HYDROCHLORIDE
  7. ZOFRAN [Concomitant]
     Active Substance: ONDANSETRON HYDROCHLORIDE

REACTIONS (8)
  - Maternal exposure during pregnancy [None]
  - Maternal drugs affecting foetus [None]
  - Subchorionic haemorrhage [None]
  - Foetal death [None]
  - Vanishing twin syndrome [None]
  - Dehydration [None]
  - Premature labour [None]
  - Back pain [None]

NARRATIVE: CASE EVENT DATE: 20131122
